FAERS Safety Report 18212570 (Version 5)
Quarter: 2020Q4

REPORT INFORMATION
  Report Type: Report from Study
  Country: FR (occurrence: FR)
  Receive Date: 20200831
  Receipt Date: 20201020
  Transmission Date: 20210113
  Serious: Yes (Hospitalization)
  Sender: FDA-Public Use
  Company Number: NVSC2020FR235723

PATIENT
  Age: 38 Year
  Sex: Female
  Weight: 104 kg

DRUGS (3)
  1. SECUKINUMAB. [Suspect]
     Active Substance: SECUKINUMAB
     Indication: HIDRADENITIS
     Dosage: UNK
     Route: 058
     Dates: start: 20191015, end: 20200818
  2. DAFALGAN [Concomitant]
     Active Substance: ACETAMINOPHEN
     Indication: LYMPHOEDEMA
     Dosage: UNK
     Route: 065
     Dates: start: 20191030
  3. DIASEPTYL [Concomitant]
     Active Substance: CHLORHEXIDINE
     Indication: HIDRADENITIS
     Dosage: UNK
     Route: 065
     Dates: start: 20190930

REACTIONS (1)
  - Large intestine infection [Recovering/Resolving]

NARRATIVE: CASE EVENT DATE: 20200818
